FAERS Safety Report 5332063-3 (Version None)
Quarter: 2007Q2

REPORT INFORMATION
  Report Type: 
  Country: None (occurrence: None)
  Receive Date: 20070306
  Receipt Date: 20060104
  Transmission Date: 20071010
  Serious: Yes (Other)
  Sender: FDA-Public Use
  Company Number: A03200600071

PATIENT
  Sex: Female

DRUGS (2)
  1. PLAVIX [Suspect]
     Indication: ANGIOPLASTY
     Dosage: 75 MG - ORAL
     Route: 048
     Dates: start: 20051130, end: 20051204
  2. PLAVIX [Suspect]
     Indication: STENT PLACEMENT
     Dosage: 75 MG - ORAL
     Route: 048
     Dates: start: 20051130, end: 20051204

REACTIONS (4)
  - ERYTHEMA [None]
  - PRURITUS [None]
  - SWELLING FACE [None]
  - URTICARIA GENERALISED [None]
